FAERS Safety Report 5900232-7 (Version None)
Quarter: 2008Q3

REPORT INFORMATION
  Report Type: 
  Country: None (occurrence: None)
  Receive Date: 20080926
  Receipt Date: 20080918
  Transmission Date: 20090109
  Serious: Yes (Other)
  Sender: FDA-Public Use
  Company Number: ZA-JNJFOC-20080904517

PATIENT
  Age: 19 Year
  Sex: Male

DRUGS (2)
  1. RISPERDAL [Suspect]
     Indication: AGGRESSION
     Route: 065
  2. EPILIM [Suspect]
     Indication: DRUG USE FOR UNKNOWN INDICATION
     Route: 065

REACTIONS (2)
  - DEPRESSED LEVEL OF CONSCIOUSNESS [None]
  - LETHARGY [None]
